FAERS Safety Report 10832832 (Version 1)
Quarter: 2015Q1

REPORT INFORMATION
  Report Type: Report from Study
  Country: US (occurrence: US)
  Receive Date: 20150219
  Receipt Date: 20150219
  Transmission Date: 20150721
  Serious: No
  Sender: FDA-Public Use
  Company Number: US-ABBVIE-14P-163-1200798-00

PATIENT
  Age: 57 Year
  Sex: Male

DRUGS (3)
  1. HUMIRA [Suspect]
     Active Substance: ADALIMUMAB
     Indication: COLITIS ULCERATIVE
     Dates: start: 20140113, end: 20140113
  2. HUMIRA [Suspect]
     Active Substance: ADALIMUMAB
     Dates: start: 20140226
  3. HUMIRA [Suspect]
     Active Substance: ADALIMUMAB
     Dates: start: 20140127, end: 20140127

REACTIONS (4)
  - Injection site pain [Unknown]
  - Colitis ulcerative [Recovering/Resolving]
  - Eating disorder [Recovered/Resolved]
  - Bronchitis [Not Recovered/Not Resolved]

NARRATIVE: CASE EVENT DATE: 20140113
